FAERS Safety Report 15674894 (Version 1)
Quarter: 2018Q4

REPORT INFORMATION
  Report Type: Spontaneous
  Country: US (occurrence: US)
  Receive Date: 20181130
  Receipt Date: 20181130
  Transmission Date: 20190205
  Serious: No
  Sender: FDA-Public Use
  Company Number: US-ASTRAZENECA-2018SF50281

PATIENT
  Age: 1021 Month
  Sex: Female
  Weight: 77.1 kg

DRUGS (3)
  1. XOPENEX [Concomitant]
     Active Substance: LEVALBUTEROL HYDROCHLORIDE
     Dosage: TWO PUFFS ONCE OR TWICE A DAY
  2. FASENRA [Suspect]
     Active Substance: BENRALIZUMAB
     Dosage: ONCE EVERY 8 WEEKS
     Route: 058
  3. FASENRA [Suspect]
     Active Substance: BENRALIZUMAB
     Dosage: ONCE EVERY 4 WEEKS FOR THE FIRST 3 DOSES
     Route: 058
     Dates: start: 201809

REACTIONS (2)
  - Arthritis [Unknown]
  - Arthralgia [Not Recovered/Not Resolved]

NARRATIVE: CASE EVENT DATE: 201810
